FAERS Safety Report 22254863 (Version 1)
Quarter: 2023Q2

REPORT INFORMATION
  Report Type: Report from Study
  Country: BR (occurrence: BR)
  Receive Date: 20230426
  Receipt Date: 20230426
  Transmission Date: 20230721
  Serious: Yes (Other)
  Sender: FDA-Public Use
  Company Number: BR-BAYER-2022A036317

PATIENT
  Age: 68 Year
  Sex: Female

DRUGS (10)
  1. NEXAVAR [Suspect]
     Active Substance: SORAFENIB
     Dosage: UNK UNK, QD
     Dates: start: 202111
  2. NEXAVAR [Suspect]
     Active Substance: SORAFENIB
     Dosage: 4 DF, QD
     Dates: end: 202212
  3. NEXAVAR [Suspect]
     Active Substance: SORAFENIB
     Dosage: 200 MG, BID
     Dates: start: 202303
  4. XIGDUO XR [Concomitant]
     Active Substance: DAPAGLIFLOZIN PROPANEDIOL\METFORMIN HYDROCHLORIDE
     Indication: Diabetes mellitus
     Dosage: UNK
  5. LEVOTHYROXINE [Concomitant]
     Active Substance: LEVOTHYROXINE
     Indication: Hormone therapy
     Dosage: 75 MG, QD
  6. GLICLAZIDE [Concomitant]
     Active Substance: GLICLAZIDE
     Indication: Diabetes mellitus
     Dosage: 1 DF, QD
  7. LOSARTAN [Concomitant]
     Active Substance: LOSARTAN
     Indication: Hypertension
     Dosage: 50 MG, QD
  8. AMLODIPINE BESYLATE [Concomitant]
     Active Substance: AMLODIPINE BESYLATE
     Indication: Hypertension
     Dosage: 5 MG, QD
  9. VENAFLON [Concomitant]
     Indication: Poor peripheral circulation
     Dosage: 1 DF, QD
  10. PANTOPRAZOLE [Concomitant]
     Active Substance: PANTOPRAZOLE
     Indication: Abdominal pain upper
     Dosage: 20 MG, QD

REACTIONS (13)
  - Skin fissures [Recovering/Resolving]
  - Anaemia [None]
  - Cardiovascular disorder [None]
  - Immunodeficiency [None]
  - Skin atrophy [Recovering/Resolving]
  - Sensitive skin [Not Recovered/Not Resolved]
  - Asthenia [None]
  - Impaired healing [None]
  - Pallor [None]
  - Decreased appetite [None]
  - Diarrhoea [Recovering/Resolving]
  - Limb injury [None]
  - Apathy [None]

NARRATIVE: CASE EVENT DATE: 20211101
